FAERS Safety Report 22242042 (Version 2)
Quarter: 2024Q1

REPORT INFORMATION
  Report Type: Spontaneous
  Country: US (occurrence: US)
  Receive Date: 20230421
  Receipt Date: 20240320
  Transmission Date: 20240410
  Serious: Yes (Other)
  Sender: FDA-Public Use
  Company Number: US-002147023-NVSC2023US090469

PATIENT
  Sex: Female

DRUGS (4)
  1. EVEROLIMUS [Suspect]
     Active Substance: EVEROLIMUS
     Indication: Organ transplant
     Dosage: 0.7 MG, BID
     Route: 065
  2. EVEROLIMUS [Suspect]
     Active Substance: EVEROLIMUS
     Indication: Immunosuppressant drug therapy
  3. TACROLIMUS [Suspect]
     Active Substance: TACROLIMUS
     Indication: Organ transplant
     Dosage: 0.05 MG/KG, Q12H (IMMEDIATE-RELEASE FORMULATION)  (ALONG WITH AAZTHIOPRINE)
     Route: 048
  4. TACROLIMUS [Suspect]
     Active Substance: TACROLIMUS
     Indication: Immunosuppressant drug therapy
     Dosage: 0.05 MG/KG, Q12H (IMMEDIATE-RELEASE FORMULATION)  (ALONG WITH EVEROLIMUS)
     Route: 048

REACTIONS (5)
  - Nephropathy toxic [Unknown]
  - Transplant rejection [Unknown]
  - Nausea [Unknown]
  - Vomiting [Unknown]
  - Product use in unapproved indication [Unknown]
